FAERS Safety Report 4331569-3 (Version None)
Quarter: 2004Q1

REPORT INFORMATION
  Report Type: 
  Country: None (occurrence: None)
  Receive Date: 20040329
  Receipt Date: 20040317
  Transmission Date: 20041129
  Serious: Yes (Hospitalization)
  Sender: FDA-Public Use
  Company Number: 2004-01188

PATIENT
  Age: 61 Year
  Sex: Female
  Weight: 70.7 kg

DRUGS (8)
  1. PREDNISONE [Suspect]
     Indication: CHRONIC OBSTRUCTIVE AIRWAYS DISEASE
     Dosage: 10 MG, DAILY, THEN TAPERED ,ORAL: TAPER, ORAL : 20 MG, DAILY, THEN TAPER, ORAL: 40 MG DAILY, THEN TA
     Route: 048
     Dates: start: 20031101, end: 20031101
  2. PREDNISONE [Suspect]
     Indication: CHRONIC OBSTRUCTIVE AIRWAYS DISEASE
     Dosage: 10 MG, DAILY, THEN TAPERED ,ORAL: TAPER, ORAL : 20 MG, DAILY, THEN TAPER, ORAL: 40 MG DAILY, THEN TA
     Route: 048
     Dates: start: 20030101
  3. PREDNISONE [Suspect]
     Indication: CHRONIC OBSTRUCTIVE AIRWAYS DISEASE
     Dosage: 10 MG, DAILY, THEN TAPERED ,ORAL: TAPER, ORAL : 20 MG, DAILY, THEN TAPER, ORAL: 40 MG DAILY, THEN TA
     Route: 048
     Dates: start: 20030401
  4. PREDNISONE [Suspect]
     Indication: CHRONIC OBSTRUCTIVE AIRWAYS DISEASE
     Dosage: 10 MG, DAILY, THEN TAPERED ,ORAL: TAPER, ORAL : 20 MG, DAILY, THEN TAPER, ORAL: 40 MG DAILY, THEN TA
     Route: 048
     Dates: start: 20030617
  5. PREDNISONE [Suspect]
     Indication: CHRONIC OBSTRUCTIVE AIRWAYS DISEASE
     Dosage: 10 MG, DAILY, THEN TAPERED ,ORAL: TAPER, ORAL : 20 MG, DAILY, THEN TAPER, ORAL: 40 MG DAILY, THEN TA
     Route: 048
     Dates: start: 20030801
  6. PREDNISONE(ROXANE)(PREDNISONE) [Suspect]
     Indication: CHRONIC OBSTRUCTIVE AIRWAYS DISEASE
     Dosage: 40 MG , DAILY THEN TAPER, ORAL
     Route: 048
     Dates: start: 20031201
  7. AVAPRO [Concomitant]
  8. TRANXENE [Concomitant]

REACTIONS (17)
  - ABDOMINAL DISTENSION [None]
  - ARTHRALGIA [None]
  - BONE PAIN [None]
  - CUSHINGOID [None]
  - DIVERTICULITIS [None]
  - DRUG INEFFECTIVE FOR UNAPPROVED INDICATION [None]
  - DYSPNOEA [None]
  - EPINEPHRINE INCREASED [None]
  - FEELING ABNORMAL [None]
  - FORCED EXPIRATORY VOLUME ABNORMAL [None]
  - MALAISE [None]
  - MUSCULAR WEAKNESS [None]
  - MYALGIA [None]
  - NOREPINEPHRINE INCREASED [None]
  - OEDEMA PERIPHERAL [None]
  - VISUAL ACUITY REDUCED [None]
  - WEIGHT INCREASED [None]
